FAERS Safety Report 8161269-3 (Version None)
Quarter: 2012Q1

REPORT INFORMATION
  Report Type: 
  Country: None (occurrence: None)
  Receive Date: 20120222
  Receipt Date: 20120222
  Transmission Date: 20120608
  Serious: Yes (Hospitalization)
  Sender: FDA-Public Use
  Company Number: None

PATIENT
  Sex: Female
  Weight: 97.7 kg

DRUGS (4)
  1. LEUCOVORIN CALCIUM [Suspect]
     Dosage: 3200 MG
     Dates: end: 20111228
  2. ELOXATIN [Suspect]
     Dosage: 320 MG
     Dates: end: 20111228
  3. ERBITUX [Suspect]
     Dosage: 4000 MG
     Dates: end: 20120104
  4. FLUOROURACIL [Suspect]
     Dosage: 12720 MG
     Dates: end: 20111230

REACTIONS (4)
  - PNEUMONIA [None]
  - OXYGEN SATURATION DECREASED [None]
  - HILAR LYMPHADENOPATHY [None]
  - REFUSAL OF TREATMENT BY PATIENT [None]
